FAERS Safety Report 8071151-8 (Version None)
Quarter: 2012Q1

REPORT INFORMATION
  Report Type: 
  Country: None (occurrence: None)
  Receive Date: 20120125
  Receipt Date: 20120119
  Transmission Date: 20120608
  Serious: Yes (Hospitalization, Other)
  Sender: FDA-Public Use
  Company Number: PHHY2010CA35367

PATIENT
  Sex: Male

DRUGS (2)
  1. AREDIA [Suspect]
     Indication: NEOPLASM OF THYMUS
  2. ZOMETA [Suspect]
     Indication: THYMIC CANCER METASTATIC
     Dosage: 4 MG EVERY 3 WEEKS
     Dates: start: 20100526

REACTIONS (8)
  - NASOPHARYNGITIS [None]
  - PNEUMONIA [None]
  - BLOOD PHOSPHORUS DECREASED [None]
  - HEART RATE INCREASED [None]
  - DEHYDRATION [None]
  - CARBON DIOXIDE INCREASED [None]
  - ANION GAP DECREASED [None]
  - BLOOD CALCIUM INCREASED [None]
